FAERS Safety Report 21359900 (Version 1)
Quarter: 2022Q3

REPORT INFORMATION
  Report Type: Other
  Country: None (occurrence: CA)
  Receive Date: 20220921
  Receipt Date: 20220921
  Transmission Date: 20221027
  Serious: Yes (Hospitalization, Other)
  Sender: FDA-Public Use
  Company Number: CA-B.Braun Medical Inc.-2133039

PATIENT
  Age: 71 Year
  Sex: Female

DRUGS (1)
  1. CEFUROXIME SODIUM [Suspect]
     Active Substance: CEFUROXIME SODIUM

REACTIONS (1)
  - Drug reaction with eosinophilia and systemic symptoms [Recovered/Resolved]
